FAERS Safety Report 16916099 (Version 1)
Quarter: 2019Q4

REPORT INFORMATION
  Report Type: Spontaneous
  Country: GB (occurrence: GB)
  Receive Date: 20191014
  Receipt Date: 20191014
  Transmission Date: 20200122
  Serious: Yes (Hospitalization)
  Sender: FDA-Public Use
  Company Number: GB-PFIZER INC-2019435575

PATIENT
  Age: 66 Year
  Sex: Female

DRUGS (6)
  1. AMOXICILLIN. [Concomitant]
     Active Substance: AMOXICILLIN
     Dosage: UNK
  2. VARENICLINE TARTRATE [Suspect]
     Active Substance: VARENICLINE TARTRATE
     Indication: SMOKING CESSATION THERAPY
     Dosage: 500 UG, 1X/DAY (FOR 3 DAYS)
     Route: 048
     Dates: start: 20190813, end: 20190815
  3. ROPINIROLE. [Concomitant]
     Active Substance: ROPINIROLE
     Dosage: UNK
  4. VARENICLINE TARTRATE [Suspect]
     Active Substance: VARENICLINE TARTRATE
     Dosage: 1000 UG, 1X/DAY (FOR 4 DAYS)
     Route: 048
     Dates: start: 20190816, end: 20190819
  5. VARENICLINE TARTRATE [Suspect]
     Active Substance: VARENICLINE TARTRATE
     Dosage: 2 MG, 1X/DAY
     Route: 048
     Dates: start: 20190820, end: 20190913
  6. CARBIMAZOLE [Concomitant]
     Active Substance: CARBIMAZOLE
     Dosage: UNK

REACTIONS (5)
  - Malaise [Unknown]
  - Hepatic enzyme increased [Unknown]
  - Rash [Unknown]
  - Drug reaction with eosinophilia and systemic symptoms [Recovering/Resolving]
  - Eosinophil count increased [Unknown]

NARRATIVE: CASE EVENT DATE: 20190912
